FAERS Safety Report 17450819 (Version 1)
Quarter: 2020Q1

REPORT INFORMATION
  Report Type: Spontaneous
  Country: US (occurrence: US)
  Receive Date: 20200222
  Receipt Date: 20200222
  Transmission Date: 20200409
  Serious: Yes (Disabling)
  Sender: FDA-Public Use
  Company Number: None

PATIENT
  Age: 46 Year
  Sex: Female
  Weight: 90 kg

DRUGS (1)
  1. LEVOFLOXACIN. [Suspect]
     Active Substance: LEVOFLOXACIN
     Indication: PNEUMONIA
     Dosage: ?          QUANTITY:5 TABLET(S);?
     Route: 048
     Dates: start: 20200203, end: 20200207

REACTIONS (9)
  - Depression [None]
  - Insomnia [None]
  - Gait inability [None]
  - Pain [None]
  - Weight increased [None]
  - Pneumonia [None]
  - Tendon pain [None]
  - Arthralgia [None]
  - Burning sensation [None]

NARRATIVE: CASE EVENT DATE: 20200210
